FAERS Safety Report 4497526-1 (Version None)
Quarter: 2004Q4

REPORT INFORMATION
  Report Type: 
  Country: None (occurrence: None)
  Receive Date: 20041110
  Receipt Date: 20041028
  Transmission Date: 20050328
  Serious: Yes (Hospitalization)
  Sender: FDA-Public Use
  Company Number: FR-ROCHE-385624

PATIENT
  Age: 42 Year
  Sex: Male

DRUGS (3)
  1. MYCOPHENOLATE MOFETIL [Suspect]
     Route: 065
  2. AZATHIOPRINE [Concomitant]
     Dosage: DISCONTINUED DUE TO CHRONIC ALLOGRAFT NEPHROPATHY.
  3. STEROIDS NOS [Concomitant]

REACTIONS (8)
  - ANAEMIA [None]
  - ASTHENIA [None]
  - CYTOMEGALOVIRUS INFECTION [None]
  - HYPOALBUMINAEMIA [None]
  - HYPOCALCAEMIA [None]
  - HYPOCHOLESTEROLAEMIA [None]
  - INTESTINAL VILLI ATROPHY [None]
  - WEIGHT DECREASED [None]
